FAERS Safety Report 6422229-3 (Version None)
Quarter: 2009Q4

REPORT INFORMATION
  Report Type: 
  Country: None (occurrence: None)
  Receive Date: 20091030
  Receipt Date: 20091027
  Transmission Date: 20100525
  Serious: Yes (Death, Hospitalization, Other)
  Sender: FDA-Public Use
  Company Number: PHEH2009US14128

PATIENT
  Sex: Male
  Weight: 87.9 kg

DRUGS (2)
  1. EXJADE [Suspect]
     Indication: ACUTE MYELOID LEUKAEMIA
     Dosage: 250 MG DAILY
     Route: 048
     Dates: start: 20090828
  2. EXJADE [Suspect]
     Indication: IRON OVERLOAD

REACTIONS (8)
  - BLOOD BILIRUBIN INCREASED [None]
  - BLOOD COUNT ABNORMAL [None]
  - ESCHERICHIA SEPSIS [None]
  - FEBRILE NEUTROPENIA [None]
  - HYPOKALAEMIA [None]
  - HYPOTENSION [None]
  - SEPTIC SHOCK [None]
  - VITAL FUNCTIONS ABNORMAL [None]
